FAERS Safety Report 17865607 (Version 2)
Quarter: 2020Q4

REPORT INFORMATION
  Report Type: Spontaneous
  Country: US (occurrence: US)
  Receive Date: 20200605
  Receipt Date: 20201104
  Transmission Date: 20210113
  Serious: Yes (Other)
  Sender: FDA-Public Use
  Company Number: US-PFIZER INC-2020219101

PATIENT
  Age: 76 Year
  Sex: Female
  Weight: 76.19 kg

DRUGS (8)
  1. XELJANZ XR [Suspect]
     Active Substance: TOFACITINIB CITRATE
     Indication: ARTHRITIS
     Dosage: 11 MG, 1X/DAY (ONCE A DAY/ A DAY)
     Route: 048
     Dates: start: 2016
  2. CYMBALTA [Concomitant]
     Active Substance: DULOXETINE HYDROCHLORIDE
     Dosage: UNK (STARTED ABOUT 2-3 YEARS AGO)
  3. POTASSIUM [Concomitant]
     Active Substance: POTASSIUM
     Indication: BLOOD POTASSIUM DECREASED
     Dosage: UNK (STARTED ABOUT MAYBE ABOUT 2 YEARS AGO)
  4. VICODIN [Concomitant]
     Active Substance: ACETAMINOPHEN\HYDROCODONE BITARTRATE
     Dosage: UNK (STARTED TAKING IS AFTER THE FIRST BACK SURGERY, HAS BEEN TAKING ON AND OFF SINCE 2000)
     Dates: start: 2000
  5. PREDNISONE. [Concomitant]
     Active Substance: PREDNISONE
     Dosage: 5 MG (STARTED ABOUT 6 YEARS AGO, SHE TAKES IT OFF AND ON, FROM THE SURGERIES)
  6. XELJANZ XR [Suspect]
     Active Substance: TOFACITINIB CITRATE
     Indication: OSTEOARTHRITIS
     Dosage: 11 MG, ALTERNATE DAY (EVERY OTHER DAY)
     Route: 048
  7. HYDROCHLOROTHIAZIDE. [Concomitant]
     Active Substance: HYDROCHLOROTHIAZIDE
     Indication: FLUID RETENTION
     Dosage: 25 MG (STARTED ABOUT 6 YEARS AGO)
  8. OXYCONTIN [Concomitant]
     Active Substance: OXYCODONE HYDROCHLORIDE
     Indication: PROCEDURAL PAIN
     Dosage: UNK (TOOK IT BECAUSE SHE HAD A SURGERY, QUIT TAKING IT LAST YEAR)
     Dates: end: 2019

REACTIONS (5)
  - Alopecia [Recovering/Resolving]
  - Condition aggravated [Recovering/Resolving]
  - Intentional product use issue [Unknown]
  - Mental impairment [Unknown]
  - Body height decreased [Unknown]

NARRATIVE: CASE EVENT DATE: 2019
